FAERS Safety Report 16084535 (Version 1)
Quarter: 2019Q2

REPORT INFORMATION
  Report Type: Spontaneous
  Country: US (occurrence: US)
  Receive Date: 20190317
  Receipt Date: 20190317
  Transmission Date: 20190711
  Serious: Yes (Disabling, Other)
  Sender: FDA-Public Use
  Company Number: None

PATIENT
  Age: 45 Year
  Sex: Male
  Weight: 90 kg

DRUGS (1)
  1. LOSARTAN POTASSIUM 100 MG [Suspect]
     Active Substance: LOSARTAN POTASSIUM
     Indication: HYPERTENSION
     Dosage: ?          QUANTITY:30 TABLET(S);?
     Route: 048
     Dates: start: 20190131, end: 20190315

REACTIONS (9)
  - Hypoaesthesia [None]
  - Headache [None]
  - Visual impairment [None]
  - Insomnia [None]
  - Dizziness [None]
  - Feeling cold [None]
  - Chest pain [None]
  - Dyspnoea [None]
  - Irritability [None]

NARRATIVE: CASE EVENT DATE: 20190310
